FAERS Safety Report 5028737-4 (Version None)
Quarter: 2006Q2

REPORT INFORMATION
  Report Type: 
  Country: None (occurrence: None)
  Receive Date: 20060619
  Receipt Date: 20060427
  Transmission Date: 20061013
  Serious: Yes (Other)
  Sender: FDA-Public Use
  Company Number: US-BRISTOL-MYERS SQUIBB COMPANY-13361167

PATIENT
  Age: 80 Year
  Sex: Female

DRUGS (13)
  1. KENALOG-40 [Suspect]
     Indication: MACULAR OEDEMA
     Route: 031
     Dates: start: 20060419, end: 20060419
  2. LEVOXYL [Concomitant]
  3. LIPITOR [Concomitant]
  4. PREMARIN [Concomitant]
  5. FUROSEMIDE [Concomitant]
  6. KLOR-CON [Concomitant]
  7. LANOXIN [Concomitant]
  8. SPIRONOLACTONE [Concomitant]
  9. DIOVAN [Concomitant]
  10. WARFARIN SODIUM [Concomitant]
  11. CALCIUM GLUCONATE [Concomitant]
  12. ASCORBIC ACID [Concomitant]
  13. ZINC [Concomitant]

REACTIONS (1)
  - ENDOPHTHALMITIS [None]
